FAERS Safety Report 13107252 (Version 1)
Quarter: 2017Q1

REPORT INFORMATION
  Report Type: Spontaneous
  Country: VN (occurrence: VN)
  Receive Date: 20170112
  Receipt Date: 20170112
  Transmission Date: 20170428
  Serious: Yes (Other)
  Sender: FDA-Public Use
  Company Number: VN-ROCHE-1877438

PATIENT
  Age: 54 Year
  Sex: Female
  Weight: 58 kg

DRUGS (6)
  1. ENTECAVIR. [Concomitant]
     Active Substance: ENTECAVIR
     Indication: HEPATITIS B
     Route: 065
     Dates: start: 20141024
  2. HERCEPTIN [Suspect]
     Active Substance: TRASTUZUMAB
     Indication: BREAST CANCER
     Dosage: LOADING DOSE
     Route: 065
     Dates: start: 20141219
  3. PACLITAXEL. [Suspect]
     Active Substance: PACLITAXEL
     Indication: BREAST CANCER
     Route: 065
     Dates: start: 20141219
  4. HERCEPTIN [Suspect]
     Active Substance: TRASTUZUMAB
     Dosage: SUBSEQUENT DOSES
     Route: 065
     Dates: start: 20150507
  5. HERCEPTIN [Suspect]
     Active Substance: TRASTUZUMAB
     Dosage: SUBSEQUENT DOSES
     Route: 065
  6. HERCEPTIN [Suspect]
     Active Substance: TRASTUZUMAB
     Route: 065
     Dates: start: 20150416

REACTIONS (4)
  - Ventricular dyskinesia [Unknown]
  - Ejection fraction decreased [Recovered/Resolved]
  - Myocardial ischaemia [Unknown]
  - Hypoaesthesia [Unknown]

NARRATIVE: CASE EVENT DATE: 20150312
